FAERS Safety Report 15088175 (Version 4)
Quarter: 2018Q4

REPORT INFORMATION
  Report Type: Spontaneous
  Country: SK (occurrence: SK)
  Receive Date: 20180629
  Receipt Date: 20181030
  Transmission Date: 20190204
  Serious: Yes (Other)
  Sender: FDA-Public Use
  Company Number: SK-BRISTOL-MYERS SQUIBB COMPANY-BMS-2018-058292

PATIENT
  Age: 41 Year
  Sex: Female

DRUGS (4)
  1. DALTEPARIN                         /01708302/ [Suspect]
     Active Substance: DALTEPARIN SODIUM
     Indication: THROMBOSIS
     Dosage: 12500 IU, QD
     Route: 065
  2. APIXABAN [Suspect]
     Active Substance: APIXABAN
     Indication: EMBOLISM VENOUS
     Dosage: 2.5 MG, BID
     Route: 048
  3. APIXABAN [Suspect]
     Active Substance: APIXABAN
     Indication: THROMBOSIS
     Dosage: 5 MG, BID
     Route: 065
  4. NADROPARIN CALCIUM [Suspect]
     Active Substance: NADROPARIN CALCIUM
     Indication: PULMONARY EMBOLISM
     Dosage: 0.8 ML, BID
     Route: 058

REACTIONS (4)
  - Injection site pain [Unknown]
  - Uterine haemorrhage [Unknown]
  - Drug ineffective [Unknown]
  - Prescribed underdose [Unknown]
